FAERS Safety Report 10228317 (Version 1)
Quarter: 2014Q2

REPORT INFORMATION
  Report Type: Spontaneous
  Country: US (occurrence: None)
  Receive Date: 20140609
  Receipt Date: 20140609
  Transmission Date: 20141212
  Serious: Yes (Hospitalization)
  Sender: FDA-Public Use
  Company Number: None

PATIENT
  Age: 57 Year
  Sex: Female
  Weight: 60.33 kg

DRUGS (1)
  1. CLARITHROMYCIN [Suspect]
     Indication: BRONCHITIS
     Dosage: 1 TWICE DAILY TAKEN BY MOUTH
     Route: 048
     Dates: start: 20140529, end: 20140603

REACTIONS (7)
  - Anxiety [None]
  - Depression [None]
  - Myalgia [None]
  - Hyperhidrosis [None]
  - Panic reaction [None]
  - Pyrexia [None]
  - Agitation [None]
